FAERS Safety Report 13523101 (Version 1)
Quarter: 2017Q2

REPORT INFORMATION
  Report Type: Report from Study
  Country: DE (occurrence: DE)
  Receive Date: 20170508
  Receipt Date: 20170508
  Transmission Date: 20170830
  Serious: Yes (Life-Threatening, Hospitalization, Disabling)
  Sender: FDA-Public Use
  Company Number: DE-JNJFOC-20170505029

PATIENT
  Age: 6 Decade
  Sex: Female

DRUGS (3)
  1. METHOTREXATE. [Suspect]
     Active Substance: METHOTREXATE
     Indication: RHEUMATOID ARTHRITIS
     Route: 065
     Dates: start: 201401, end: 201605
  2. METHOTREXATE. [Suspect]
     Active Substance: METHOTREXATE
     Indication: RHEUMATOID ARTHRITIS
     Route: 065
     Dates: start: 2009, end: 201310
  3. SIMPONI [Suspect]
     Active Substance: GOLIMUMAB
     Indication: RHEUMATOID ARTHRITIS
     Route: 058
     Dates: start: 201207, end: 201605

REACTIONS (11)
  - Enterobacter infection [Unknown]
  - Pneumonia escherichia [Unknown]
  - Cerebral artery thrombosis [Unknown]
  - Cerebral vasoconstriction [Unknown]
  - Intracranial aneurysm [Unknown]
  - Staphylococcal infection [Unknown]
  - Subarachnoid haemorrhage [Unknown]
  - Hemiparesis [Unknown]
  - Ventricular enlargement [Unknown]
  - Haemorrhagic cerebral infarction [Unknown]
  - Systemic inflammatory response syndrome [Unknown]

NARRATIVE: CASE EVENT DATE: 20160510
